FAERS Safety Report 24323453 (Version 1)
Quarter: 2024Q3

REPORT INFORMATION
  Report Type: Spontaneous
  Country: TR (occurrence: TR)
  Receive Date: 20240916
  Receipt Date: 20240916
  Transmission Date: 20241017
  Serious: Yes (Death, Other)
  Sender: PURACAP
  Company Number: TR-PURACAP-TR-2024EPCLIT01102

PATIENT

DRUGS (1)
  1. ERGOCALCIFEROL [Suspect]
     Active Substance: ERGOCALCIFEROL
     Indication: Vitamin D deficiency
     Route: 065

REACTIONS (3)
  - Pancreatitis necrotising [Fatal]
  - Hypercalcaemia [Fatal]
  - Hypervitaminosis D [Fatal]
